FAERS Safety Report 5220766-0 (Version None)
Quarter: 2007Q1

REPORT INFORMATION
  Report Type: 
  Country: None (occurrence: None)
  Receive Date: 20070126
  Receipt Date: 20070117
  Transmission Date: 20070707
  Serious: Yes (Other)
  Sender: FDA-Public Use
  Company Number: BR-ROCHE-479170

PATIENT
  Sex: Male

DRUGS (2)
  1. RIVOTRIL [Suspect]
     Indication: ANXIETY
     Dosage: INTERRUPTION FOR TWO MONTHS DUE TO MENINGITIS.
     Route: 048
     Dates: end: 20060615
  2. RIVOTRIL [Suspect]
     Route: 048
     Dates: start: 20061217

REACTIONS (4)
  - DRUG WITHDRAWAL SYNDROME [None]
  - HEART RATE INCREASED [None]
  - MENINGITIS [None]
  - SOMNOLENCE [None]
